FAERS Safety Report 9878375 (Version 2)
Quarter: 2014Q1

REPORT INFORMATION
  Report Type: Spontaneous
  Country: US (occurrence: US)
  Receive Date: 20140206
  Receipt Date: 20140206
  Transmission Date: 20141002
  Serious: No
  Sender: FDA-Public Use
  Company Number: US-ALLERGAN-1311265US

PATIENT
  Age: 52 Year
  Sex: Female

DRUGS (5)
  1. BOTOX COSMETIC [Suspect]
     Indication: SKIN WRINKLING
     Dosage: 22 UNITS, SINGLE
     Route: 030
     Dates: start: 20121122, end: 20121122
  2. BOTOX COSMETIC [Suspect]
     Dosage: 22 UNITS, SINGLE
     Route: 030
     Dates: start: 20121107, end: 20121107
  3. JUVEDERM [Suspect]
     Indication: SKIN WRINKLING
  4. MAXALT [Concomitant]
     Indication: MIGRAINE
     Dosage: UNK UNK, PRN
  5. HERBAL SUPPLEMENTS [Concomitant]
     Indication: PRODUCT USED FOR UNKNOWN INDICATION
     Dosage: UNK, PRN

REACTIONS (3)
  - Wrong technique in drug usage process [Unknown]
  - Drug ineffective [Unknown]
  - Drug ineffective [Unknown]
